FAERS Safety Report 7078769 (Version 3)
Quarter: 2014Q3

REPORT INFORMATION
  Report Type: Spontaneous
  Country: US (occurrence: None)
  Receive Date: 20090805
  Receipt Date: 20140815
  Transmission Date: 20150326
  Serious: Yes (Death, Hospitalization, Other)
  Sender: FDA-Public Use
  Company Number: 2009S1005840

PATIENT
  Age: 72 Year
  Sex: Male

DRUGS (6)
  1. PHOSPHO-SODA [Suspect]
     Active Substance: SODIUM PHOSPHATE, DIBASIC\SODIUM PHOSPHATE, MONOBASIC
     Indication: COLONOSCOPY
     Dosage: TOTAL; PO
     Route: 048
     Dates: start: 200805, end: 200805
  2. ASPIRIN. [Concomitant]
     Active Substance: ASPIRIN
  3. CENTRUM SILVER [Concomitant]
     Active Substance: VITAMINS
  4. ENALAPRIL [Concomitant]
     Active Substance: ENALAPRIL
  5. HYDROCHLOROTHIAZIDE. [Concomitant]
     Active Substance: HYDROCHLOROTHIAZIDE
  6. VITAMIN E [Concomitant]
     Active Substance: .ALPHA.-TOCOPHEROL

REACTIONS (8)
  - Hyperkalaemia [None]
  - Nephrogenic anaemia [None]
  - Hyperparathyroidism [None]
  - Pneumatosis intestinalis [None]
  - Hypotension [None]
  - Tachycardia [None]
  - Renal failure chronic [None]
  - Metabolic acidosis [None]

NARRATIVE: CASE EVENT DATE: 20080902
